FAERS Safety Report 10782468 (Version 1)
Quarter: 2015Q1

REPORT INFORMATION
  Report Type: Spontaneous
  Country: US (occurrence: US)
  Receive Date: 20150210
  Receipt Date: 20150210
  Transmission Date: 20150721
  Serious: No
  Sender: FDA-Public Use
  Company Number: US-ASTRAZENECA-2015SE12826

PATIENT
  Sex: Female

DRUGS (1)
  1. SYMBICORT [Suspect]
     Active Substance: BUDESONIDE\FORMOTEROL FUMARATE DIHYDRATE
     Dosage: 160/4.5MG 2 PUFFS BID AND HAS BEEN USING THE INHALER FOR COUPLE OF YEARS.
     Route: 055

REACTIONS (2)
  - Intentional product misuse [Unknown]
  - Dementia [Unknown]
